FAERS Safety Report 6269364-0 (Version None)
Quarter: 2009Q3

REPORT INFORMATION
  Report Type: 
  Country: None (occurrence: None)
  Receive Date: 20090713
  Receipt Date: 20090312
  Transmission Date: 20100115
  Serious: Yes (Life-Threatening)
  Sender: FDA-Public Use
  Company Number: 090313-0000525

PATIENT
  Age: 20 Day
  Sex: Male
  Weight: 2.5 kg

DRUGS (10)
  1. INDOCIN [Suspect]
     Indication: DRUG ADMINISTRATION ERROR
     Dosage: 25 MG; 1X; IV
     Route: 042
  2. DOPAMINE HCL [Concomitant]
  3. DOBUTAMINE HCL [Concomitant]
  4. MILRINONE [Concomitant]
  5. FUROSEMIDE [Concomitant]
  6. VANCOMYCIN [Concomitant]
  7. AMIKACIN [Concomitant]
  8. DIGOXIN [Concomitant]
  9. ALBUMINAR-5 [Concomitant]
  10. SODIUM REPLACEMENT [Concomitant]

REACTIONS (6)
  - CONTINUOUS HAEMODIAFILTRATION [None]
  - DRUG ADMINISTRATION ERROR [None]
  - DRUG PRESCRIBING ERROR [None]
  - NEPHROPATHY TOXIC [None]
  - OVERDOSE [None]
  - RENAL FAILURE ACUTE [None]
